FAERS Safety Report 16514902 (Version 1)
Quarter: 2019Q3

REPORT INFORMATION
  Report Type: Spontaneous
  Country: DE (occurrence: DE)
  Receive Date: 20190702
  Receipt Date: 20190702
  Transmission Date: 20191004
  Serious: Yes (Other)
  Sender: FDA-Public Use
  Company Number: DE-MYLANLABS-2019M1038539

PATIENT
  Age: 27 Year
  Sex: Male

DRUGS (10)
  1. EMTRICITABINE/TENOFOVIR DISOPROXIL FUMARATE [Suspect]
     Active Substance: EMTRICITABINE\TENOFOVIR DISOPROXIL FUMARATE
     Indication: HIV INFECTION
     Dosage: UNK
     Route: 065
  2. RIFABUTIN. [Concomitant]
     Active Substance: RIFABUTIN
     Indication: DISSEMINATED TUBERCULOSIS
  3. DOLUTEGRAVIR [Suspect]
     Active Substance: DOLUTEGRAVIR
     Indication: HIV INFECTION
     Dosage: UNK
     Route: 065
  4. ETHAMBUTOL [Concomitant]
     Active Substance: ETHAMBUTOL HYDROCHLORIDE
     Indication: DISSEMINATED TUBERCULOSIS
  5. PYRAZINAMIDE. [Concomitant]
     Active Substance: PYRAZINAMIDE
     Indication: DISSEMINATED TUBERCULOSIS
  6. RIFABUTIN. [Concomitant]
     Active Substance: RIFABUTIN
     Indication: PERICARDITIS TUBERCULOUS
     Dosage: UNK
  7. ISONIAZIDE [Concomitant]
     Active Substance: ISONIAZID
     Indication: DISSEMINATED TUBERCULOSIS
  8. ETHAMBUTOL [Concomitant]
     Active Substance: ETHAMBUTOL HYDROCHLORIDE
     Indication: PERICARDITIS TUBERCULOUS
     Dosage: UNK
  9. PYRAZINAMIDE. [Concomitant]
     Active Substance: PYRAZINAMIDE
     Indication: PERICARDITIS TUBERCULOUS
     Dosage: UNK
  10. ISONIAZIDE [Concomitant]
     Active Substance: ISONIAZID
     Indication: PERICARDITIS TUBERCULOUS
     Dosage: UNK

REACTIONS (3)
  - Virologic failure [Recovered/Resolved]
  - Treatment noncompliance [Unknown]
  - Intentional product misuse [Unknown]
